FAERS Safety Report 16654284 (Version 1)
Quarter: 2019Q3

REPORT INFORMATION
  Report Type: Spontaneous
  Country: DE (occurrence: DE)
  Receive Date: 20190731
  Receipt Date: 20190731
  Transmission Date: 20191004
  Serious: Yes (Life-Threatening, Other)
  Sender: FDA-Public Use
  Company Number: DE-PFIZER INC-2019323617

PATIENT
  Age: 44 Year
  Sex: Female
  Weight: 49.5 kg

DRUGS (7)
  1. CALCIUM FOLINATE [Suspect]
     Active Substance: LEUCOVORIN CALCIUM
     Indication: GASTRIC CANCER
     Dosage: FLOT REGIMEN
  2. MCP [METOCLOPRAMIDE HYDROCHLORIDE] [Concomitant]
     Dosage: 10 MG, UNK (UP TO 4 TIMES A DAY)
  3. FLUOROURACIL MEDAC [Suspect]
     Active Substance: FLUOROURACIL
     Indication: GASTRIC CANCER
     Dosage: FLOT REGIMEN
     Route: 042
     Dates: start: 20190701, end: 20190702
  4. ONDANSETRON [Concomitant]
     Active Substance: ONDANSETRON
     Dosage: 8 MG, UNK (UP TO 2 TIMES A DAY)
  5. OXALIPLATIN. [Suspect]
     Active Substance: OXALIPLATIN
     Indication: GASTRIC CANCER
     Dosage: FLOT REGIMEN
     Route: 042
     Dates: start: 20190701
  6. DOCETAXEL. [Suspect]
     Active Substance: DOCETAXEL
     Indication: GASTRIC CANCER
     Dosage: FLOT REGIMEN
     Route: 042
     Dates: start: 20190701
  7. LOPERAMIDE [Concomitant]
     Active Substance: LOPERAMIDE
     Dosage: 2 MG, UNK (UP TO 6 TIMES 1-2 CAPSULES)

REACTIONS (3)
  - Leukopenia [Recovering/Resolving]
  - Troponin increased [Recovering/Resolving]
  - Coma [Recovered/Resolved]

NARRATIVE: CASE EVENT DATE: 20190702
